FAERS Safety Report 12443030 (Version 1)
Quarter: 2016Q2

REPORT INFORMATION
  Report Type: Spontaneous
  Country: None (occurrence: None)
  Receive Date: 20160606
  Receipt Date: 20160606
  Transmission Date: 20160815
  Serious: No
  Sender: FDA-Public Use
  Company Number: None

PATIENT
  Age: 29 Year
  Sex: Female
  Weight: 52.62 kg

DRUGS (2)
  1. NEXPLANON [Suspect]
     Active Substance: ETONOGESTREL
     Indication: CONTRACEPTION
     Dosage: NEXPLANON (ETONOGESTREL IMPLANT)?1 IMPLANT EVERY 3 YEARS?SUBCUTANEOUS IMPLANT
     Route: 058
     Dates: start: 20150105, end: 20160602
  2. NEXPLANON [Concomitant]
     Active Substance: ETONOGESTREL

REACTIONS (6)
  - Menorrhagia [None]
  - Oligomenorrhoea [None]
  - Enlarged clitoris [None]
  - Skin hyperpigmentation [None]
  - Hair growth abnormal [None]
  - Acne [None]
